FAERS Safety Report 25865617 (Version 3)
Quarter: 2025Q4

REPORT INFORMATION
  Report Type: Spontaneous
  Country: US (occurrence: US)
  Receive Date: 20250930
  Receipt Date: 20251211
  Transmission Date: 20260118
  Serious: No
  Sender: SANOFI AVENTIS
  Company Number: US-SA-2025SA291103

PATIENT
  Age: 30 Year
  Sex: Female

DRUGS (1)
  1. DUPIXENT [Suspect]
     Active Substance: DUPILUMAB
     Indication: Eosinophilic oesophagitis
     Dosage: 300 MG, QW
     Route: 058
     Dates: start: 202508

REACTIONS (6)
  - Asthma [Unknown]
  - Abdominal discomfort [Recovered/Resolved]
  - Dysphagia [Recovering/Resolving]
  - Hair growth abnormal [Unknown]
  - Malaise [Unknown]
  - Oropharyngeal pain [Not Recovered/Not Resolved]

NARRATIVE: CASE EVENT DATE: 20250101
